FAERS Safety Report 7659618-5 (Version None)
Quarter: 2011Q3

REPORT INFORMATION
  Report Type: 
  Country: None (occurrence: None)
  Receive Date: 20110805
  Receipt Date: 20110802
  Transmission Date: 20111222
  Serious: Yes (Other)
  Sender: FDA-Public Use
  Company Number: FR-MERCK-1108FRA00007

PATIENT
  Age: 67 Year
  Sex: Male

DRUGS (1)
  1. PRIMAXIN [Suspect]
     Indication: PROSTATITIS
     Route: 042
     Dates: start: 20110101, end: 20110101

REACTIONS (10)
  - DYSPNOEA [None]
  - PYREXIA [None]
  - VOMITING [None]
  - MALAISE [None]
  - PRURITUS [None]
  - LOSS OF CONSCIOUSNESS [None]
  - TONGUE OEDEMA [None]
  - VERTIGO [None]
  - DIARRHOEA [None]
  - URTICARIA [None]
